FAERS Safety Report 5496791-1 (Version None)
Quarter: 2007Q4

REPORT INFORMATION
  Report Type: 
  Country: None (occurrence: None)
  Receive Date: 20071025
  Receipt Date: 20070816
  Transmission Date: 20080405
  Serious: No
  Sender: FDA-Public Use
  Company Number: A0671177A

PATIENT
  Age: 75 Year
  Sex: Female

DRUGS (3)
  1. ADVAIR DISKUS 100/50 [Suspect]
     Indication: CHRONIC OBSTRUCTIVE PULMONARY DISEASE
     Dosage: 2PUFF TWICE PER DAY
     Route: 055
     Dates: start: 20070401
  2. DUONEB [Concomitant]
  3. ANTIBIOTIC [Concomitant]

REACTIONS (2)
  - CONJUNCTIVITIS INFECTIVE [None]
  - PHARMACEUTICAL PRODUCT COMPLAINT [None]
